FAERS Safety Report 16970487 (Version 1)
Quarter: 2019Q4

REPORT INFORMATION
  Report Type: Report from Study
  Country: CN (occurrence: CN)
  Receive Date: 20191029
  Receipt Date: 20191029
  Transmission Date: 20200122
  Serious: Yes (Other)
  Sender: FDA-Public Use
  Company Number: CN-ELI_LILLY_AND_COMPANY-CN201910010132

PATIENT
  Age: 69 Year
  Sex: Male

DRUGS (1)
  1. INSULIN, HUMAN [Suspect]
     Active Substance: INSULIN HUMAN
     Indication: DIABETES MELLITUS
     Dosage: 18 INTERNATIONAL UNIT, BID
     Route: 058
     Dates: start: 2011, end: 201907

REACTIONS (3)
  - Blood glucose increased [Recovering/Resolving]
  - Discomfort [Recovering/Resolving]
  - Shock hypoglycaemic [Recovering/Resolving]
